FAERS Safety Report 9107965 (Version 1)
Quarter: 2013Q1

REPORT INFORMATION
  Report Type: Spontaneous
  Country: IT (occurrence: IT)
  Receive Date: 20130221
  Receipt Date: 20130221
  Transmission Date: 20140127
  Serious: Yes (Other)
  Sender: FDA-Public Use
  Company Number: IT-MYLANLABS-2013S1003005

PATIENT
  Age: 59 Year
  Sex: Female
  Weight: 115 kg

DRUGS (8)
  1. PACLITAXEL [Suspect]
     Indication: OVARIAN EPITHELIAL CANCER
     Dosage: CYCLIC
     Route: 042
     Dates: start: 20130110, end: 20130131
  2. CARBOPLATIN [Suspect]
     Indication: OVARIAN EPITHELIAL CANCER
     Dosage: CYCLIC
     Route: 042
     Dates: start: 20130110, end: 20130131
  3. COMPETACT [Concomitant]
     Indication: DIABETES MELLITUS
  4. EUTIROX [Concomitant]
     Indication: PRODUCT USED FOR UNKNOWN INDICATION
  5. CARDIOASPIRIN [Concomitant]
     Indication: PRODUCT USED FOR UNKNOWN INDICATION
  6. LOBIVON [Concomitant]
     Indication: PRODUCT USED FOR UNKNOWN INDICATION
  7. ZANEDIP [Concomitant]
     Indication: HYPERTENSION
  8. CRESTOR [Concomitant]
     Indication: PRODUCT USED FOR UNKNOWN INDICATION

REACTIONS (4)
  - Abdominal pain [Unknown]
  - Pain [Unknown]
  - Pain in extremity [Unknown]
  - Vomiting [Unknown]
